FAERS Safety Report 19950158 (Version 1)
Quarter: 2021Q4

REPORT INFORMATION
  Report Type: Spontaneous
  Country: US (occurrence: US)
  Receive Date: 20211013
  Receipt Date: 20211013
  Transmission Date: 20220304
  Serious: Yes (Other)
  Sender: FDA-Public Use
  Company Number: US-PFIZER INC-2017518247

PATIENT
  Age: 72 Year
  Sex: Male
  Weight: 69.85 kg

DRUGS (4)
  1. RAPAMUNE [Suspect]
     Active Substance: SIROLIMUS
     Indication: Liver transplant
     Dosage: 4 MG, DAILY
     Route: 048
     Dates: start: 2005
  2. RAPAMUNE [Suspect]
     Active Substance: SIROLIMUS
     Indication: Hepatitis C
  3. RAPAMUNE [Suspect]
     Active Substance: SIROLIMUS
     Indication: Immunodeficiency
  4. RAPAMUNE [Suspect]
     Active Substance: SIROLIMUS
     Indication: Hepatocellular carcinoma

REACTIONS (4)
  - Hepatic cancer [Unknown]
  - Lung neoplasm malignant [Unknown]
  - Off label use [Unknown]
  - Product use in unapproved indication [Unknown]

NARRATIVE: CASE EVENT DATE: 20050101
